FAERS Safety Report 16040647 (Version 1)
Quarter: 2019Q1

REPORT INFORMATION
  Report Type: Spontaneous
  Country: US (occurrence: US)
  Receive Date: 20190306
  Receipt Date: 20190306
  Transmission Date: 20190418
  Serious: No
  Sender: FDA-Public Use
  Company Number: US-VIVIMED-2017SP015468

PATIENT

DRUGS (5)
  1. PREDNISONE. [Concomitant]
     Active Substance: PREDNISONE
     Indication: ACNE CYSTIC
     Dosage: 40 MG PER DAY
     Route: 065
  2. SODIUM SULFACETAMIDE [Concomitant]
     Active Substance: SULFACETAMIDE SODIUM
     Indication: ADJUVANT THERAPY
     Dosage: UNK
     Route: 061
  3. METRONIDAZOLE. [Suspect]
     Active Substance: METRONIDAZOLE
     Indication: ACNE CONGLOBATA
     Dosage: 250 MG, BID
     Route: 048
  4. PREDNISONE. [Concomitant]
     Active Substance: PREDNISONE
     Dosage: 20 MG PER DAY
     Route: 065
  5. SULFUR. [Concomitant]
     Active Substance: SULFUR
     Indication: ADJUVANT THERAPY
     Dosage: UNK
     Route: 061

REACTIONS (2)
  - Maternal exposure during breast feeding [Unknown]
  - Exposure during pregnancy [Unknown]
